FAERS Safety Report 5527025-7 (Version None)
Quarter: 2007Q4

REPORT INFORMATION
  Report Type: 
  Country: None (occurrence: None)
  Receive Date: 20071127
  Receipt Date: 20071116
  Transmission Date: 20080405
  Serious: Yes (Death, Hospitalization)
  Sender: FDA-Public Use
  Company Number: DK-ELI_LILLY_AND_COMPANY-DK200709002776

PATIENT
  Age: 83 Year
  Sex: Male
  Weight: 100 kg

DRUGS (2)
  1. DULOXETINE HYDROCHLORIDE [Suspect]
     Indication: DEPRESSION
     Dosage: 30 MG, DAILY (1/D)
     Route: 048
     Dates: start: 20070501, end: 20070531
  2. CITALOPRAM [Concomitant]
     Dosage: 60 MG, DAILY (1/D)
     Route: 048

REACTIONS (2)
  - DEATH [None]
  - RASH [None]
